FAERS Safety Report 16395199 (Version 1)
Quarter: 2019Q2

REPORT INFORMATION
  Report Type: Spontaneous
  Country: IT (occurrence: IT)
  Receive Date: 20190605
  Receipt Date: 20190605
  Transmission Date: 20190711
  Serious: Yes (Other)
  Sender: FDA-Public Use
  Company Number: IT-MYLANLABS-2019M1051801

PATIENT
  Age: 49 Year
  Sex: Male

DRUGS (2)
  1. ENTECAVIR MYLAN [Suspect]
     Active Substance: ENTECAVIR
     Indication: HEPATITIS B
     Dosage: 1 MILLIGRAM, QD
     Route: 048
     Dates: start: 20171001
  2. TENOFOVIR DISOPROXIL TEVA /01490002/ [Suspect]
     Active Substance: TENOFOVIR DISOPROXIL FUMARATE
     Indication: HEPATITIS B
     Dosage: 300 MILLIGRAM, QD
     Route: 048
     Dates: start: 20171001

REACTIONS (3)
  - Drug ineffective [Not Recovered/Not Resolved]
  - Hypertransaminasaemia [Not Recovered/Not Resolved]
  - Hepatitis B reactivation [Not Recovered/Not Resolved]

NARRATIVE: CASE EVENT DATE: 20181001
